FAERS Safety Report 7640628-9 (Version None)
Quarter: 2011Q3

REPORT INFORMATION
  Report Type: 
  Country: None (occurrence: None)
  Receive Date: 20110728
  Receipt Date: 20110517
  Transmission Date: 20111222
  Serious: Yes (Other)
  Sender: FDA-Public Use
  Company Number: US-CELGENEUS-163-20785-11052379

PATIENT
  Sex: Female
  Weight: 102.6 kg

DRUGS (4)
  1. LEVOTHYROXINE SODIUM [Concomitant]
     Indication: HYPOTHYROIDISM
     Dosage: 50 MICROGRAM
     Route: 065
  2. THALOMID [Suspect]
     Indication: MULTIPLE MYELOMA
     Dosage: 100 MILLIGRAM
     Route: 048
     Dates: start: 20110201, end: 20110101
  3. PRAVASTATIN [Concomitant]
     Dosage: 40 MILLIGRAM
     Route: 065
  4. NEURONTIN [Concomitant]
     Dosage: 300 MILLIGRAM
     Route: 065

REACTIONS (6)
  - HEMIPARESIS [None]
  - DROOLING [None]
  - SALIVARY HYPERSECRETION [None]
  - DISTURBANCE IN ATTENTION [None]
  - FATIGUE [None]
  - FEELING ABNORMAL [None]
